FAERS Safety Report 13374869 (Version 1)
Quarter: 2017Q1

REPORT INFORMATION
  Report Type: Spontaneous
  Country: US (occurrence: US)
  Receive Date: 20170327
  Receipt Date: 20170327
  Transmission Date: 20170429
  Serious: Yes (Death)
  Sender: FDA-Public Use
  Company Number: US-VIFOR (INTERNATIONAL) INC.-VIT-2017-02927

PATIENT
  Age: 64 Year
  Sex: Female

DRUGS (7)
  1. RENVELA [Concomitant]
     Active Substance: SEVELAMER CARBONATE
  2. ESCITALOPRAM [Concomitant]
     Active Substance: ESCITALOPRAM OXALATE
  3. OLANZAPINE. [Concomitant]
     Active Substance: OLANZAPINE
  4. ALPHAGAN SOL [Concomitant]
  5. VELTASSA [Suspect]
     Active Substance: PATIROMER
     Indication: HYPERKALAEMIA
     Route: 048
     Dates: start: 20170117, end: 201703
  6. METOLAZONE. [Concomitant]
     Active Substance: METOLAZONE
  7. ATORVASTATIN [Concomitant]
     Active Substance: ATORVASTATIN

REACTIONS (2)
  - Chronic obstructive pulmonary disease [Unknown]
  - Renal failure [Fatal]

NARRATIVE: CASE EVENT DATE: 2017
